FAERS Safety Report 4943285-5 (Version None)
Quarter: 2006Q1

REPORT INFORMATION
  Report Type: 
  Country: None (occurrence: None)
  Receive Date: 20060303
  Receipt Date: 20060223
  Transmission Date: 20060701
  Serious: Yes (Death, Life-Threatening, Hospitalization)
  Sender: FDA-Public Use
  Company Number: THYM-10781

PATIENT
  Age: 61 Year
  Sex: Female
  Weight: 80 kg

DRUGS (8)
  1. THYMOGLOBULIN [Suspect]
     Indication: GRAFT VERSUS HOST DISEASE
     Dosage: 2.5 MG/KG QD IV
     Route: 042
     Dates: start: 20050920, end: 20050922
  2. FLUDARABINE [Concomitant]
  3. MELPHALAN [Concomitant]
  4. MEROPENEM [Concomitant]
  5. LEVOFLOXACIN [Concomitant]
  6. AMBISOME [Concomitant]
  7. CASPOFUNGIN [Concomitant]
  8. ACYCLOVIR [Concomitant]

REACTIONS (7)
  - DIFFUSE ALVEOLAR DAMAGE [None]
  - ENGRAFTMENT SYNDROME [None]
  - FLUID OVERLOAD [None]
  - PNEUMONIA [None]
  - PULMONARY ALVEOLAR HAEMORRHAGE [None]
  - RESPIRATORY DISTRESS [None]
  - TRANSFUSION REACTION [None]
